FAERS Safety Report 16534794 (Version 1)
Quarter: 2019Q3

REPORT INFORMATION
  Report Type: Spontaneous
  Country: ES (occurrence: US)
  Receive Date: 20190705
  Receipt Date: 20190705
  Transmission Date: 20191004
  Serious: Yes (Other)
  Sender: FDA-Public Use
  Company Number: ES-DRREDDYS-GER/SPN/19/0111538

PATIENT
  Age: 63 Year
  Sex: Female

DRUGS (3)
  1. NAPROXEN. [Suspect]
     Active Substance: NAPROXEN
     Indication: BLISTER
     Dosage: 220 MG, PRN
  2. ESTROGEN [Suspect]
     Active Substance: ESTROGENS
     Indication: PRODUCT USED FOR UNKNOWN INDICATION
  3. IMATINIB. [Suspect]
     Active Substance: IMATINIB MESYLATE
     Indication: CHRONIC MYELOID LEUKAEMIA
     Dosage: UNK

REACTIONS (4)
  - Skin fragility [Unknown]
  - Pseudoporphyria [Unknown]
  - Dermatitis [Unknown]
  - Blister [Unknown]
